FAERS Safety Report 22646653 (Version 1)
Quarter: 2023Q2

REPORT INFORMATION
  Report Type: Spontaneous
  Country: US (occurrence: None)
  Receive Date: 20230626
  Receipt Date: 20230626
  Transmission Date: 20230722
  Serious: No
  Sender: FDA-Public Use
  Company Number: None

PATIENT

DRUGS (2)
  1. ARISTADA [Suspect]
     Active Substance: ARIPIPRAZOLE LAUROXIL
  2. PALIPERIDONE [Suspect]
     Active Substance: PALIPERIDONE

REACTIONS (2)
  - Fracture [None]
  - Booster dose missed [None]
